FAERS Safety Report 7103082-1 (Version None)
Quarter: 2010Q4

REPORT INFORMATION
  Report Type: 
  Country: None (occurrence: None)
  Receive Date: 20101115
  Receipt Date: 20100611
  Transmission Date: 20110411
  Serious: Yes (Hospitalization, Other)
  Sender: FDA-Public Use
  Company Number: US-BAYER-200942630NA

PATIENT
  Age: 20 Year
  Sex: Female
  Weight: 57 kg

DRUGS (7)
  1. YASMIN [Suspect]
     Route: 048
     Dates: start: 20080401, end: 20081001
  2. OCELLA [Suspect]
     Dates: start: 20081001, end: 20090701
  3. TRAMADOL HCL [Concomitant]
  4. HEPATITIS B VACCINE [Concomitant]
  5. FLU SHOT [Concomitant]
  6. DOXYCYCLINE HYCLATE [Concomitant]
  7. NASACORT AQ [Concomitant]

REACTIONS (6)
  - ABDOMINAL DISTENSION [None]
  - ABDOMINAL PAIN UPPER [None]
  - ABDOMINAL TENDERNESS [None]
  - CHOLECYSTITIS CHRONIC [None]
  - DIARRHOEA [None]
  - NAUSEA [None]
